FAERS Safety Report 4791327-2 (Version None)
Quarter: 2005Q4

REPORT INFORMATION
  Report Type: 
  Country: None (occurrence: None)
  Receive Date: 20051007
  Receipt Date: 20050928
  Transmission Date: 20060501
  Serious: Yes (Hospitalization)
  Sender: FDA-Public Use
  Company Number: PT-JNJFOC-20050704665

PATIENT
  Sex: Female

DRUGS (6)
  1. REMICADE [Suspect]
     Route: 042
  2. REMICADE [Suspect]
     Route: 042
  3. REMICADE [Suspect]
     Route: 042
  4. REMICADE [Suspect]
     Indication: RHEUMATOID ARTHRITIS
     Route: 042
  5. METHOTREXATE [Concomitant]
     Route: 065
  6. NSAID [Concomitant]
     Route: 065

REACTIONS (9)
  - ANOREXIA [None]
  - ASTHENIA [None]
  - BACK PAIN [None]
  - FLUSHING [None]
  - HYPERSENSITIVITY [None]
  - HYPERTENSION [None]
  - PRURITUS [None]
  - THROAT TIGHTNESS [None]
  - WEIGHT DECREASED [None]
